FAERS Safety Report 15657571 (Version 1)
Quarter: 2018Q4

REPORT INFORMATION
  Report Type: Report from Study
  Country: BR (occurrence: BR)
  Receive Date: 20181126
  Receipt Date: 20181126
  Transmission Date: 20190205
  Serious: Yes (Hospitalization, Other)
  Sender: FDA-Public Use
  Company Number: BR-BIOGEN-2018BI00600351

PATIENT
  Age: 42 Year
  Sex: Female

DRUGS (1)
  1. TECFIDERA [Suspect]
     Active Substance: DIMETHYL FUMARATE
     Indication: MULTIPLE SCLEROSIS
     Route: 048
     Dates: start: 20180222, end: 20180308

REACTIONS (4)
  - Feeding disorder [Not Recovered/Not Resolved]
  - Cerebrovascular accident [Unknown]
  - Aneurysm [Recovered/Resolved]
  - Hydrocephalus [Unknown]

NARRATIVE: CASE EVENT DATE: 201803
